FAERS Safety Report 10661758 (Version 1)
Quarter: 2014Q4

REPORT INFORMATION
  Report Type: Spontaneous
  Country: US (occurrence: None)
  Receive Date: 20141217
  Receipt Date: 20141217
  Transmission Date: 20150529
  Serious: No
  Sender: FDA-Public Use
  Company Number: None

PATIENT
  Age: 64 Year
  Sex: Female
  Weight: 70.5 kg

DRUGS (26)
  1. PERCOCET [Concomitant]
     Active Substance: ACETAMINOPHEN\OXYCODONE HYDROCHLORIDE
  2. ATENOLOL. [Concomitant]
     Active Substance: ATENOLOL
  3. DAIRY DIGESTIVE SUPPLEMENT [Concomitant]
  4. ULTRAM [Concomitant]
     Active Substance: TRAMADOL HYDROCHLORIDE
  5. FLEXERIL [Concomitant]
     Active Substance: CYCLOBENZAPRINE HYDROCHLORIDE
  6. SOTALOL. [Concomitant]
     Active Substance: SOTALOL
  7. ALLERGY SHOT [Concomitant]
     Active Substance: UNSPECIFIED INGREDIENT
  8. FLONAZE [Concomitant]
  9. CALCIUM [Concomitant]
     Active Substance: CALCIUM
  10. CHLORZOXAZONE 500 MG WATSON [Suspect]
     Active Substance: CHLORZOXAZONE
     Indication: SURGERY
     Dosage: 500 MG, 2X, ORAL
     Route: 048
     Dates: start: 20141207
  11. LYRICA [Concomitant]
     Active Substance: PREGABALIN
  12. ROBAXIN [Concomitant]
     Active Substance: METHOCARBAMOL
  13. PRAVASTATIN [Concomitant]
     Active Substance: PRAVASTATIN\PRAVASTATIN SODIUM
  14. SINGULAIR [Concomitant]
     Active Substance: MONTELUKAST SODIUM
  15. VOLTAREN GEL (DICLOFENAC) [Concomitant]
  16. CINNAMON. [Concomitant]
     Active Substance: CINNAMON
  17. GLUCOSAMINE SULFATE [Concomitant]
     Active Substance: GLUCOSAMINE SULFATE
  18. NEXIUM [Concomitant]
     Active Substance: ESOMEPRAZOLE MAGNESIUM
  19. VITAMIN B12 [Concomitant]
     Active Substance: CYANOCOBALAMIN
  20. DHEA [Concomitant]
     Active Substance: DEHYDROEPIANDROSTERONE-3-SULFATE SODIUM
  21. ASTILIN [Concomitant]
  22. HYDROCODONE [Concomitant]
     Active Substance: HYDROCODONE
  23. MILK THISTLE [Concomitant]
     Active Substance: MILK THISTLE
  24. CELEBREX [Concomitant]
     Active Substance: CELECOXIB
  25. LISINOPRIL. [Concomitant]
     Active Substance: LISINOPRIL
  26. ASPIRN [Concomitant]
     Active Substance: ASPIRIN

REACTIONS (2)
  - Respiratory tract congestion [None]
  - Hypersensitivity [None]

NARRATIVE: CASE EVENT DATE: 20141207
